FAERS Safety Report 11393262 (Version 1)
Quarter: 2015Q3

REPORT INFORMATION
  Report Type: Spontaneous
  Country: US (occurrence: US)
  Receive Date: 20150818
  Receipt Date: 20150818
  Transmission Date: 20151125
  Serious: No
  Sender: FDA-Public Use
  Company Number: US-GLAXOSMITHKLINE-US2015GSK116447

PATIENT
  Sex: Male

DRUGS (9)
  1. LISINOPRIL. [Concomitant]
     Active Substance: LISINOPRIL
  2. ZINC [Concomitant]
     Active Substance: ZINC\ZINC CHLORIDE
  3. PRAVASTATIN [Concomitant]
     Active Substance: PRAVASTATIN\PRAVASTATIN SODIUM
  4. OMEGA 3 [Concomitant]
     Active Substance: OMEGA-3 FATTY ACIDS
  5. MAGNESIUM [Concomitant]
     Active Substance: MAGNESIUM
  6. CALCIUM [Concomitant]
     Active Substance: CALCIUM
  7. MOBIC [Concomitant]
     Active Substance: MELOXICAM
  8. VOTRIENT [Suspect]
     Active Substance: PAZOPANIB HYDROCHLORIDE
     Indication: SARCOMA METASTATIC
     Dosage: 800 MG, QD
     Route: 048
     Dates: start: 20150709
  9. COQ10 [Concomitant]
     Active Substance: UBIDECARENONE

REACTIONS (3)
  - Fatigue [Unknown]
  - Dyspepsia [Unknown]
  - Nausea [Unknown]
